FAERS Safety Report 16988225 (Version 1)
Quarter: 2019Q4

REPORT INFORMATION
  Report Type: Spontaneous
  Country: US (occurrence: US)
  Receive Date: 20190919
  Receipt Date: 20190919
  Transmission Date: 20200122
  Serious: No
  Sender: FDA-Public Use
  Company Number: None

PATIENT
  Age: 15 Year
  Sex: Male
  Weight: 71.21 kg

DRUGS (1)
  1. MONTELUKAST 10MG TABLETS [Suspect]
     Active Substance: MONTELUKAST\MONTELUKAST SODIUM
     Indication: RHINITIS ALLERGIC
     Dosage: ?          QUANTITY:1 DF DOSAGE FORM;?
     Route: 048
     Dates: start: 2005, end: 20190808

REACTIONS (5)
  - Thinking abnormal [None]
  - Anxiety [None]
  - Sleep terror [None]
  - Hallucination [None]
  - Panic attack [None]

NARRATIVE: CASE EVENT DATE: 20190808
